APPROVED DRUG PRODUCT: FUROSEMIDE
Active Ingredient: FUROSEMIDE
Strength: 10MG/ML
Dosage Form/Route: INJECTABLE;INJECTION
Application: A070078 | Product #001
Applicant: SMITH AND NEPHEW SOLOPAK DIV SMITH AND NEPHEW
Approved: Feb 5, 1986 | RLD: No | RS: No | Type: DISCN